FAERS Safety Report 21168589 (Version 1)
Quarter: 2022Q3

REPORT INFORMATION
  Report Type: Spontaneous
  Country: CN (occurrence: CN)
  Receive Date: 20220803
  Receipt Date: 20220803
  Transmission Date: 20221027
  Serious: Yes (Hospitalization)
  Sender: FDA-Public Use
  Company Number: CN-ALLERGAN-2225230US

PATIENT
  Sex: Male

DRUGS (10)
  1. AVIBACTAM SODIUM\CEFTAZIDIME [Suspect]
     Active Substance: AVIBACTAM SODIUM\CEFTAZIDIME
     Indication: Pneumonia
     Dosage: 0.94 G, BID
     Route: 041
     Dates: start: 20220611, end: 20220622
  2. AVIBACTAM SODIUM\CEFTAZIDIME [Suspect]
     Active Substance: AVIBACTAM SODIUM\CEFTAZIDIME
     Dosage: 2.5G
     Route: 041
     Dates: start: 20220611, end: 20220611
  3. VORICONAZOLE [Suspect]
     Active Substance: VORICONAZOLE
     Indication: Antifungal treatment
     Dosage: 200 MG, 2X/DAY
     Route: 048
     Dates: start: 20220610, end: 20220619
  4. VORICONAZOLE [Suspect]
     Active Substance: VORICONAZOLE
     Indication: Candida infection
  5. AMINO ACIDS [Concomitant]
     Active Substance: AMINO ACIDS
     Indication: Nutritional supplementation
     Dosage: 4 TALETS, 3X/DAY
     Route: 048
     Dates: start: 20220508, end: 20220701
  6. TEPRENONE [Concomitant]
     Active Substance: TEPRENONE
     Indication: Prophylaxis against gastrointestinal ulcer
     Dosage: 50 MG, TID
     Route: 048
     Dates: start: 20220508, end: 20220701
  7. PROTEIN HYDROLYSATE [Concomitant]
     Active Substance: PROTEIN HYDROLYSATE
     Indication: Hypoproteinaemia
     Dosage: 30 ML, TID
     Route: 048
     Dates: start: 20220516, end: 20220701
  8. ESOMEPRAZOLE SODIUM [Concomitant]
     Active Substance: ESOMEPRAZOLE SODIUM
     Indication: Prophylaxis against gastrointestinal ulcer
     Dosage: 40 MG, QD
     Route: 041
     Dates: start: 20220606, end: 20220701
  9. AMMONIUM GLYCYRRHIZATE\CYSTEINE [Concomitant]
     Active Substance: AMMONIUM GLYCYRRHIZATE\CYSTEINE
     Indication: Prophylaxis
     Dosage: 100 ML, QD
     Route: 041
     Dates: start: 20220602, end: 20220701
  10. SHENG XUE BAO [Concomitant]
     Indication: Anaemia prophylaxis
     Dosage: 15 ML, TID
     Route: 048
     Dates: start: 20220519, end: 20220701

REACTIONS (3)
  - Hepatic function abnormal [Not Recovered/Not Resolved]
  - Off label use [Unknown]
  - Product use issue [Unknown]

NARRATIVE: CASE EVENT DATE: 20220611
